FAERS Safety Report 20892987 (Version 1)
Quarter: 2022Q2

REPORT INFORMATION
  Report Type: Spontaneous
  Country: US (occurrence: None)
  Receive Date: 20220531
  Receipt Date: 20220531
  Transmission Date: 20220721
  Serious: No
  Sender: FDA-Public Use
  Company Number: US-Hikma Pharmaceuticals USA Inc.-US-H14001-22-01118

PATIENT
  Sex: Male

DRUGS (2)
  1. FLUTICASONE [Suspect]
     Active Substance: FLUTICASONE
     Indication: Hypersensitivity
     Route: 045
     Dates: start: 202204
  2. FLUTICASONE [Suspect]
     Active Substance: FLUTICASONE
     Dosage: UNKNOWN
     Route: 045
     Dates: start: 202204

REACTIONS (3)
  - Nasal discomfort [Unknown]
  - Drug ineffective [Unknown]
  - Off label use [Unknown]

NARRATIVE: CASE EVENT DATE: 20220401
